FAERS Safety Report 5769072-6 (Version None)
Quarter: 2008Q2

REPORT INFORMATION
  Report Type: 
  Country: None (occurrence: None)
  Receive Date: 20080612
  Receipt Date: 20080318
  Transmission Date: 20081010
  Serious: No
  Sender: FDA-Public Use
  Company Number: US-ABBOTT-08P-163-0443569-00

PATIENT
  Sex: Male
  Weight: 65.83 kg

DRUGS (1)
  1. HUMIRA [Suspect]
     Indication: CROHN'S DISEASE
     Route: 058
     Dates: start: 20070901

REACTIONS (6)
  - ERYTHEMA [None]
  - HERPES ZOSTER [None]
  - PAIN OF SKIN [None]
  - SKIN BURNING SENSATION [None]
  - SKIN LESION [None]
  - SKIN WARM [None]
